FAERS Safety Report 18485120 (Version 1)
Quarter: 2020Q4

REPORT INFORMATION
  Report Type: Spontaneous
  Country: NO (occurrence: NO)
  Receive Date: 20201110
  Receipt Date: 20201110
  Transmission Date: 20210114
  Serious: Yes (Disabling)
  Sender: FDA-Public Use
  Company Number: NO-GLAXOSMITHKLINE-NO2020221020

PATIENT
  Age: 22 Year
  Sex: Female

DRUGS (15)
  1. LAMISIL [Suspect]
     Active Substance: TERBINAFINE HYDROCHLORIDE
     Indication: FUNGAL INFECTION
     Dosage: UNK (APPLY IN A THIN LAYER TWICE DAILY FOR 2-3 WEEKS (UNKNOWN START / END DATE - NOT IN USE NOW))
     Route: 003
  2. LAXOBERAL [Suspect]
     Active Substance: SODIUM PICOSULFATE
     Indication: PRODUCT USED FOR UNKNOWN INDICATION
     Dosage: 10 DF (10-20 DROPS (UNKNOWN START / END DATE - NOT IN USE NOW))
     Route: 048
  3. PINEX FORTE [Suspect]
     Active Substance: ACETAMINOPHEN\CODEINE PHOSPHATE
     Indication: PAIN
     Dosage: 1 DF, 1-2 TABLETS AGAINT HEAVY PAIN, (AS NECESSARY)
     Route: 048
  4. VOLTAREN [Suspect]
     Active Substance: DICLOFENAC SODIUM
     Indication: PAIN
     Dosage: 1 DF, TID (1 X 3 (UNKNOWN START / END DATE - NOT IN USE NOW))
     Route: 048
  5. HIPREX [Suspect]
     Active Substance: METHENAMINE HIPPURATE
     Indication: PROPHYLAXIS URINARY TRACT INFECTION
     Dosage: 1 DF, BID (1+0+1+0)
     Route: 048
  6. KETORAX [Suspect]
     Active Substance: KETOBEMIDONE HYDROCHLORIDE
     Indication: PAIN
     Dosage: 1 TABLET EVERY 4-5 HOURS (UNKNOWN START / END DATE - NOT IN USE NOW)
     Route: 048
  7. PARACET [Suspect]
     Active Substance: ACETAMINOPHEN
     Indication: PAIN
     Dosage: 1 DF, TID,  (AS NECESSARY), 1 TABLET AS REQUIRED UP TO 3 TIMES A DAY
     Route: 048
  8. VIMOVO [Suspect]
     Active Substance: ESOMEPRAZOLE MAGNESIUM\NAPROXEN
     Indication: PAIN
     Dosage: 1 DF, BID (1+0+1+0)
     Route: 048
  9. LAKTULOSE [Suspect]
     Active Substance: LACTULOSE
     Indication: PRODUCT USED FOR UNKNOWN INDICATION
     Dosage: 15 ML, BID (15 ML MORNING AND EVENING - UNKNOWN START / END DATE (NOT IN USE NOW))
     Route: 048
  10. FUCIDIN [Suspect]
     Active Substance: FUSIDATE SODIUM
     Indication: PRODUCT USED FOR UNKNOWN INDICATION
     Dosage: 1 DF, BID (APPLY 2-3 TIMES DAILY (UNKNOWN START / END DATE - NOT IN USE NOW)
     Route: 003
  11. TRIMETHOPRIM. [Suspect]
     Active Substance: TRIMETHOPRIM
     Indication: URINARY TRACT INFECTION
     Dosage: 1 DF, BID (1 + 0 + 1 + 0 (UNKNOWN START / END DATE - NOT IN USE NOW)))
     Route: 048
  12. TRAMADOL ACTAVIS [Suspect]
     Active Substance: TRAMADOL
     Indication: PAIN
     Dosage: 1 DF,  (AS NECESSARY), 1 TABLET AS REQUIRED UP TO 3 TIMES A DAY
     Route: 048
  13. SAROTEX [Suspect]
     Active Substance: AMITRIPTYLINE HYDROCHLORIDE
     Indication: PAIN
     Dosage: 10 MEQ, QD (0+0+1+0)
     Route: 048
  14. PROTOPIC [Suspect]
     Active Substance: TACROLIMUS
     Indication: ECZEMA
     Dosage: 1 DF, BID (APPLY IN A THIN LAYER X 2)
     Route: 061
  15. SELEXID [PIVMECILLINAM HYDROCHLORIDE] [Suspect]
     Active Substance: PIVMECILLINAM HYDROCHLORIDE
     Indication: URINARY TRACT INFECTION
     Dosage: 1 DF, TID, 1 + 1 + 1 + 0 - UNKNOWN WHEN SHE TOOK THE CURE, NOT IN USE NOW.
     Route: 048

REACTIONS (1)
  - Haematoma [Not Recovered/Not Resolved]
